FAERS Safety Report 4925810-3 (Version None)
Quarter: 2006Q1

REPORT INFORMATION
  Report Type: 
  Country: None (occurrence: None)
  Receive Date: 20060228
  Receipt Date: 20050322
  Transmission Date: 20060701
  Serious: Yes (Life-Threatening, Hospitalization, Other)
  Sender: FDA-Public Use
  Company Number: US-GLAXOSMITHKLINE-A0551169A

PATIENT
  Age: 50 Year
  Sex: Female

DRUGS (6)
  1. LAMICTAL [Suspect]
     Route: 048
     Dates: start: 20050303, end: 20050312
  2. WELLBUTRIN SR [Suspect]
     Indication: DRUG USE FOR UNKNOWN INDICATION
     Route: 048
     Dates: start: 20011204
  3. LEXAPRO [Concomitant]
     Dosage: 10MG IN THE MORNING
  4. LEVSINEX [Concomitant]
     Indication: IRRITABLE BOWEL SYNDROME
  5. AMBIEN [Concomitant]
     Indication: INSOMNIA
     Dosage: 10MG AT NIGHT
  6. VICODIN [Concomitant]

REACTIONS (1)
  - RASH [None]
